FAERS Safety Report 10229806 (Version 1)
Quarter: 2014Q2

REPORT INFORMATION
  Report Type: Report from Study
  Country: JP (occurrence: JP)
  Receive Date: 20140611
  Receipt Date: 20140611
  Transmission Date: 20141212
  Serious: No
  Sender: FDA-Public Use
  Company Number: JP-JNJFOC-20140516724

PATIENT
  Age: 41 Year
  Sex: Male
  Weight: 63 kg

DRUGS (7)
  1. STELARA [Suspect]
     Indication: PSORIASIS
     Route: 058
     Dates: start: 20130104
  2. STELARA [Suspect]
     Indication: PSORIASIS
     Route: 058
     Dates: start: 20130125
  3. STELARA [Suspect]
     Indication: PSORIASIS
     Dosage: CYCLE 6-7
     Route: 058
     Dates: start: 20140110
  4. STELARA [Suspect]
     Indication: PSORIASIS
     Dosage: CYCLE 3-5
     Route: 058
     Dates: start: 20130419
  5. DOVONEX [Concomitant]
     Indication: PSORIASIS
     Route: 061
  6. ISCOTIN [Concomitant]
     Indication: PROPHYLAXIS
     Route: 048
     Dates: start: 20121204
  7. OXAROL [Concomitant]
     Indication: PSORIASIS
     Route: 061

REACTIONS (1)
  - Mycobacterium tuberculosis complex test positive [Unknown]
